FAERS Safety Report 25538498 (Version 1)
Quarter: 2025Q3

REPORT INFORMATION
  Report Type: Spontaneous
  Country: US (occurrence: None)
  Receive Date: 20250709
  Receipt Date: 20250709
  Transmission Date: 20251021
  Serious: Yes (unspecified)
  Sender: FDA-CTU
  Company Number: None

PATIENT
  Age: 6 Year
  Sex: Male
  Weight: 21.7 kg

DRUGS (1)
  1. GAMUNEX-C [Suspect]
     Active Substance: HUMAN IMMUNOGLOBULIN G
     Route: 042
     Dates: start: 20250524, end: 20250529

REACTIONS (5)
  - Haemolysis [None]
  - Haemoglobin decreased [None]
  - Reticulocyte count decreased [None]
  - Haptoglobin decreased [None]
  - Anti A antibody positive [None]

NARRATIVE: CASE EVENT DATE: 20250530
